APPROVED DRUG PRODUCT: NEO-CORTEF
Active Ingredient: HYDROCORTISONE ACETATE; NEOMYCIN SULFATE
Strength: 2.5%;EQ 3.5MG BASE/GM
Dosage Form/Route: OINTMENT;TOPICAL
Application: A060751 | Product #003
Applicant: PHARMACIA AND UPJOHN CO
Approved: Approved Prior to Jan 1, 1982 | RLD: No | RS: No | Type: DISCN